FAERS Safety Report 15868209 (Version 1)
Quarter: 2019Q1

REPORT INFORMATION
  Report Type: Spontaneous
  Country: ES (occurrence: ES)
  Receive Date: 20190125
  Receipt Date: 20190125
  Transmission Date: 20190417
  Serious: Yes (Hospitalization)
  Sender: FDA-Public Use
  Company Number: PHHY2019ES016323

PATIENT
  Age: 71 Year
  Sex: Male

DRUGS (2)
  1. ATORVASTATIN [Suspect]
     Active Substance: ATORVASTATIN
     Indication: HYPERCHOLESTEROLAEMIA
     Dosage: 80 MG, Q24H (0-0-1)
     Route: 048
     Dates: start: 20150220, end: 20170609
  2. FORTECORTIN [Concomitant]
     Active Substance: DEXAMETHASONE
     Indication: ADENOCARCINOMA OF COLON
     Dosage: 4 MG, Q24H (1-0-0)
     Route: 048
     Dates: start: 20170509

REACTIONS (2)
  - Acute kidney injury [Recovered/Resolved]
  - Rhabdomyolysis [Recovered/Resolved]

NARRATIVE: CASE EVENT DATE: 20170522
